FAERS Safety Report 7951492-2 (Version None)
Quarter: 2011Q4

REPORT INFORMATION
  Report Type: 
  Country: None (occurrence: None)
  Receive Date: 20111201
  Receipt Date: 20111128
  Transmission Date: 20120403
  Serious: Yes (Other)
  Sender: FDA-Public Use
  Company Number: US-PFIZER INC-2011290655

PATIENT
  Age: 45 Year
  Sex: Male
  Weight: 118 kg

DRUGS (4)
  1. LYRICA [Suspect]
     Indication: NEUROPATHY PERIPHERAL
     Dosage: 200 MG, 3X/DAY
  2. METOPROLOL [Concomitant]
     Indication: HYPERTENSION
     Dosage: UNK
  3. NIASPAN [Concomitant]
     Indication: BLOOD CHOLESTEROL INCREASED
     Dosage: UNK
  4. DILTIAZEM [Concomitant]
     Indication: HYPERTENSION
     Dosage: 60 MG, 2X/DAY

REACTIONS (2)
  - IMPAIRED DRIVING ABILITY [None]
  - VISUAL ACUITY REDUCED [None]
